FAERS Safety Report 5308923-6 (Version None)
Quarter: 2007Q2

REPORT INFORMATION
  Report Type: 
  Country: None (occurrence: None)
  Receive Date: 20070426
  Receipt Date: 20070312
  Transmission Date: 20071010
  Serious: No
  Sender: FDA-Public Use
  Company Number: US-PFIZER INC-2006127157

PATIENT
  Sex: Male

DRUGS (3)
  1. BEXTRA [Suspect]
     Route: 048
  2. CELEBREX [Suspect]
     Route: 048
  3. VIOXX [Suspect]
     Route: 048
     Dates: start: 20010701, end: 20011202

REACTIONS (1)
  - NO ADVERSE EFFECT [None]
